FAERS Safety Report 4690921-7 (Version None)
Quarter: 2005Q2

REPORT INFORMATION
  Report Type: 
  Country: None (occurrence: None)
  Receive Date: 20050610
  Receipt Date: 20050531
  Transmission Date: 20051028
  Serious: Yes (Hospitalization)
  Sender: FDA-Public Use
  Company Number: 11390

PATIENT
  Age: 7 Year
  Sex: Female

DRUGS (1)
  1. PAMIDRONIC ACID [Suspect]
     Indication: FIBROUS DYSPLASIA OF BONE
     Dosage: IV
     Route: 042
     Dates: start: 20050512, end: 20050512

REACTIONS (5)
  - ABDOMINAL PAIN [None]
  - CHEST PAIN [None]
  - PAIN IN EXTREMITY [None]
  - PYREXIA [None]
  - VOMITING [None]
